FAERS Safety Report 9526370 (Version 2)
Quarter: 2013Q3

REPORT INFORMATION
  Report Type: Spontaneous
  Country: US (occurrence: US)
  Receive Date: 20130916
  Receipt Date: 20130925
  Transmission Date: 20140515
  Serious: Yes (Disabling)
  Sender: FDA-Public Use
  Company Number: US-PERRIGO-13US009253

PATIENT
  Age: 54 Year
  Sex: Female
  Weight: 56.24 kg

DRUGS (9)
  1. TUSSIN CF MAX 296 [Suspect]
     Indication: COUGH
     Dosage: 3 DOSES
     Route: 048
     Dates: start: 201308, end: 20130825
  2. CVS NIGHTTIME COLD/FLU RELIEF [Suspect]
     Indication: COUGH
     Dosage: UNK
     Route: 048
     Dates: start: 201308
  3. XANAX [Suspect]
     Indication: ANXIETY
     Dosage: 0.5 MG
     Route: 065
  4. PERIOGARD [Suspect]
     Indication: ORAL PAIN
     Route: 002
  5. CELEXA [Concomitant]
     Indication: DEPRESSION
     Dosage: UNK, QD
     Route: 065
     Dates: start: 201307
  6. AMBIEN [Concomitant]
     Indication: INSOMNIA
     Dosage: 10 MG, QHS, PFN
     Route: 065
     Dates: start: 2010
  7. PREMARIN [Concomitant]
     Indication: HORMONE REPLACEMENT THERAPY
     Dosage: UNK
     Route: 065
     Dates: start: 2003
  8. LORTAB [Concomitant]
     Indication: SURGERY
     Dosage: 7.50 MG (3-4 TABLETS DAILY)
     Route: 065
     Dates: start: 2003
  9. ALBUTEROL [Concomitant]
     Indication: BRONCHITIS
     Dosage: PRN
     Route: 055

REACTIONS (2)
  - Drug screen positive [Unknown]
  - Wrong technique in drug usage process [Unknown]
